FAERS Safety Report 9494638 (Version 3)
Quarter: 2013Q4

REPORT INFORMATION
  Report Type: Spontaneous
  Country: IT (occurrence: None)
  Receive Date: 20130828
  Receipt Date: 20131021
  Transmission Date: 20140711
  Serious: Yes (Hospitalization)
  Sender: FDA-Public Use
  Company Number: 2013IT002331

PATIENT
  Age: 39 Year
  Sex: Male
  Weight: 120 kg

DRUGS (9)
  1. PONATINIB [Suspect]
     Indication: CHRONIC MYELOID LEUKAEMIA
     Route: 048
     Dates: start: 20110707, end: 20130817
  2. ATENOLOL (ATENOLOL) [Concomitant]
  3. ALLOPURINOL [Concomitant]
  4. FUROSEMIDE (FUROSEMIDE SODIUM) [Concomitant]
  5. LANSOPRAZOLE (LANSOPRAZOLE) [Concomitant]
  6. AMLODIPINE (AMLODIPINE) [Concomitant]
  7. FENOFIBRATE (FENOFIBRATE) [Concomitant]
  8. VALSARTAN (VALSARTAN) [Concomitant]
  9. URSODEOXYCHOLIC ACID (URSODEOXYCHOLIC ACID) [Concomitant]

REACTIONS (1)
  - Pulmonary embolism [None]
